FAERS Safety Report 8523175-1 (Version None)
Quarter: 2012Q3

REPORT INFORMATION
  Report Type: 
  Country: None (occurrence: None)
  Receive Date: 20120713
  Receipt Date: 20120713
  Transmission Date: 20120928
  Serious: Yes (Other)
  Sender: FDA-Public Use
  Company Number: None

PATIENT
  Sex: Female
  Weight: 122.4712 kg

DRUGS (2)
  1. CYMBALTA [Suspect]
     Indication: DEPRESSION
     Dosage: 1 CAPSULE - 60 MG DAILY PO
     Route: 048
     Dates: start: 20111001, end: 20120701
  2. CYMBALTA [Suspect]
     Indication: ARTHRITIS
     Dosage: 1 CAPSULE - 60 MG DAILY PO
     Route: 048
     Dates: start: 20111001, end: 20120701

REACTIONS (19)
  - NECK PAIN [None]
  - CRYING [None]
  - CONDITION AGGRAVATED [None]
  - MIDDLE INSOMNIA [None]
  - HEADACHE [None]
  - LOSS OF EMPLOYMENT [None]
  - PAIN [None]
  - ANGER [None]
  - PARAESTHESIA [None]
  - FRUSTRATION [None]
  - ACTIVITIES OF DAILY LIVING IMPAIRED [None]
  - PAIN IN EXTREMITY [None]
  - INITIAL INSOMNIA [None]
  - DIZZINESS [None]
  - ASTHENIA [None]
  - ARTHRALGIA [None]
  - DRUG WITHDRAWAL SYNDROME [None]
  - VISION BLURRED [None]
  - FEELING ABNORMAL [None]
